FAERS Safety Report 17843129 (Version 1)
Quarter: 2020Q2

REPORT INFORMATION
  Report Type: Spontaneous
  Country: FR (occurrence: FR)
  Receive Date: 20200530
  Receipt Date: 20200530
  Transmission Date: 20200714
  Serious: Yes (Hospitalization)
  Sender: FDA-Public Use
  Company Number: FR-ABBVIE-20K-056-3424450-00

PATIENT
  Age: 59 Year
  Sex: Male
  Weight: 70 kg

DRUGS (1)
  1. DUODOPA [Suspect]
     Active Substance: CARBIDOPA\LEVODOPA
     Indication: PARKINSON^S DISEASE
     Dosage: 4.7 ML/H FROM 07H TO 22H
     Route: 050
     Dates: start: 20191107, end: 20200504

REACTIONS (2)
  - Demyelinating polyneuropathy [Not Recovered/Not Resolved]
  - General physical health deterioration [Not Recovered/Not Resolved]

NARRATIVE: CASE EVENT DATE: 20200504
